FAERS Safety Report 9073141 (Version 1)
Quarter: 2013Q1

REPORT INFORMATION
  Report Type: Report from Study
  Country: US (occurrence: US)
  Receive Date: 20130129
  Receipt Date: 20130129
  Transmission Date: 20140127
  Serious: No
  Sender: FDA-Public Use
  Company Number: US-ABBOTT-12P-163-0921944-00

PATIENT
  Age: 38 Year
  Sex: Female

DRUGS (6)
  1. HUMIRA 40 MG/0.8 ML PEN [Suspect]
     Indication: ARTHRITIS REACTIVE
     Dates: start: 201111
  2. VIMOVO (NAPROXEN/20 MG ESOMEPRAZOLE MAGNESIUM) [Concomitant]
     Indication: PAIN
     Route: 048
  3. NORETHINDRONE [Concomitant]
     Indication: ENDOMETRIOSIS
     Route: 048
  4. IMITREX [Concomitant]
     Indication: MIGRAINE
  5. ONDANSETRON [Concomitant]
     Indication: NAUSEA
  6. ONDANSETRON [Concomitant]
     Indication: MIGRAINE

REACTIONS (2)
  - Drug ineffective [Not Recovered/Not Resolved]
  - Liver function test abnormal [Unknown]
